FAERS Safety Report 4445889-5 (Version None)
Quarter: 2004Q3

REPORT INFORMATION
  Report Type: 
  Country: None (occurrence: None)
  Receive Date: 20040908
  Receipt Date: 20040908
  Transmission Date: 20050211
  Serious: Yes (Hospitalization)
  Sender: FDA-Public Use
  Company Number: None

PATIENT
  Age: 72 Year
  Sex: Male

DRUGS (12)
  1. WARFARIN SODIUM [Suspect]
     Indication: CORONARY ARTERY DISEASE
     Dosage: 5 MG QD
     Dates: start: 19951101
  2. TYLENOL [Concomitant]
  3. ISOSORBIDE [Concomitant]
  4. METOPROLOL [Concomitant]
  5. DILTIAZEM [Concomitant]
  6. ZOCOR [Concomitant]
  7. OMOPRAZOLE [Concomitant]
  8. FUROSEMIDE [Concomitant]
  9. ASPIRIN [Concomitant]
  10. KCL TAB [Concomitant]
  11. CLARIT [Concomitant]
  12. AMIODRONE [Concomitant]

REACTIONS (1)
  - HAEMORRHAGE [None]
